FAERS Safety Report 10947575 (Version 1)
Quarter: 2015Q1

REPORT INFORMATION
  Report Type: Report from Study
  Country: US (occurrence: US)
  Receive Date: 20150323
  Receipt Date: 20150323
  Transmission Date: 20150721
  Serious: Yes (Death)
  Sender: FDA-Public Use
  Company Number: US-ASTRAZENECA-2015SE25433

PATIENT

DRUGS (1)
  1. PULMICORT RESPULES [Suspect]
     Active Substance: BUDESONIDE
     Dosage: 25 OVER 2SS; TWO TIMES A DAY
     Route: 055

REACTIONS (2)
  - Death [Fatal]
  - Intentional product misuse [Unknown]
